FAERS Safety Report 17801061 (Version 2)
Quarter: 2020Q2

REPORT INFORMATION
  Report Type: Spontaneous
  Country: JP (occurrence: JP)
  Receive Date: 20200519
  Receipt Date: 20200610
  Transmission Date: 20200714
  Serious: Yes (Life-Threatening, Hospitalization, Other)
  Sender: FDA-Public Use
  Company Number: JP-009507513-2005JPN000892J

PATIENT
  Age: 50 Year
  Sex: Female
  Weight: 50 kg

DRUGS (6)
  1. FAMOTIDINE. [Concomitant]
     Active Substance: FAMOTIDINE
     Indication: GASTRITIS
     Dosage: 20 MILLIGRAM, QD
     Route: 048
     Dates: start: 20200403, end: 20200501
  2. PANVITAN [Concomitant]
     Active Substance: VITAMINS
     Indication: CHEMOTHERAPY SIDE EFFECT PROPHYLAXIS
     Dosage: 1 GRAM, QD
     Route: 048
     Dates: start: 20200318, end: 20200528
  3. KEYTRUDA [Suspect]
     Active Substance: PEMBROLIZUMAB
     Indication: NON-SMALL CELL LUNG CANCER
     Dosage: 200 MILLIGRAM, Q3W
     Route: 041
     Dates: start: 20200331, end: 20200331
  4. CARBOPLATIN. [Concomitant]
     Active Substance: CARBOPLATIN
     Indication: NON-SMALL CELL LUNG CANCER
     Dosage: 540 MILLIGRAM, Q3W
     Route: 041
     Dates: start: 20200331
  5. MASBLON [Concomitant]
     Indication: CHEMOTHERAPY SIDE EFFECT PROPHYLAXIS
     Dosage: 1 MILLIGRAM, UNKNOWN
     Route: 030
     Dates: start: 20200318, end: 20200513
  6. PEMETREXED DISODIUM [Concomitant]
     Active Substance: PEMETREXED DISODIUM
     Indication: NON-SMALL CELL LUNG CANCER
     Dosage: 730 MILLIGRAM, Q3W
     Route: 041
     Dates: start: 20200331

REACTIONS (4)
  - Gastric mucosal lesion [Unknown]
  - Retinal haemorrhage [Unknown]
  - Retinal aneurysm rupture [Unknown]
  - Aplastic anaemia [Not Recovered/Not Resolved]

NARRATIVE: CASE EVENT DATE: 20200501
